FAERS Safety Report 7529261-7 (Version None)
Quarter: 2011Q2

REPORT INFORMATION
  Report Type: 
  Country: None (occurrence: None)
  Receive Date: 20110607
  Receipt Date: 20110531
  Transmission Date: 20111010
  Serious: Yes (Hospitalization)
  Sender: FDA-Public Use
  Company Number: US-PFIZER INC-2011068670

PATIENT
  Sex: Female

DRUGS (29)
  1. ADRIAMYCIN PFS [Suspect]
     Indication: BREAST CANCER
     Dosage: 108 MG, UNK
     Route: 042
     Dates: start: 20100928, end: 20101201
  2. AMOXICILLIN [Concomitant]
     Dosage: UNK
     Dates: start: 20101124
  3. ATENOLOL [Concomitant]
  4. PROMETHAZINE [Concomitant]
     Dosage: UNK
     Dates: start: 20101019
  5. IXEMPRA KIT [Suspect]
     Indication: BREAST CANCER
     Dosage: 72 MG, UNK
     Route: 042
     Dates: start: 20101221
  6. LISINOPRIL [Concomitant]
  7. VERAPAMIL [Concomitant]
  8. ACETAMINOPHEN W/ CODEINE [Concomitant]
     Indication: PAIN
     Dosage: 2 DF, EVERY 4 TO 6 HRS P.R.N
     Dates: start: 20100831
  9. ALLEGRA D 24 HOUR [Concomitant]
     Dosage: UNK
     Dates: start: 20101019
  10. APREPITANT [Concomitant]
     Dosage: UNK
     Dates: start: 20100928
  11. ATIVAN [Concomitant]
     Dosage: UNK
     Dates: start: 20101019
  12. RANITIDINE [Concomitant]
     Dosage: UNK
     Dates: start: 20101221
  13. TYLENOL-500 [Concomitant]
  14. ULTRAM [Concomitant]
  15. PROCHLORPERAZINE [Concomitant]
     Dosage: UNK
     Dates: start: 20100831
  16. ESOMEPRAZOLE [Concomitant]
     Dosage: UNK
     Dates: start: 20100923
  17. METFORMIN HCL [Concomitant]
  18. METOCLOPRAMIDE [Concomitant]
     Dosage: UNK
     Dates: start: 20101019
  19. ONDANSETRON HYDROCHLORIDE [Concomitant]
     Dosage: UNK
     Dates: start: 20100831
  20. CYTOXAN [Suspect]
     Indication: BREAST CANCER
     Dosage: 1074 MG, UNK
     Route: 042
     Dates: start: 20100928, end: 20101201
  21. AMBIEN [Concomitant]
     Dosage: UNK
     Dates: start: 20101228
  22. EMLA [Concomitant]
     Dosage: UNK
     Dates: start: 20100928
  23. EMEND [Concomitant]
     Dosage: UNK
     Dates: start: 20100831
  24. PALONOSETRON [Concomitant]
     Dosage: UNK
     Dates: start: 20100928
  25. VICOPROFEN [Concomitant]
     Dosage: UNK
     Dates: start: 20101228
  26. DEXAMETHASONE [Concomitant]
     Dosage: UNK
     Dates: start: 20100928
  27. CARAFATE [Concomitant]
     Dosage: UNK
     Dates: start: 20101228
  28. DIPHENHYDRAMINE [Concomitant]
     Dosage: UNK
     Dates: start: 20101221
  29. TRAMADOL [Concomitant]
     Indication: PAIN
     Dosage: 50 MG, EVERY 4 TO 6 HRS P.R.N
     Dates: start: 20101221

REACTIONS (5)
  - FEBRILE NEUTROPENIA [None]
  - HAEMOLYTIC ANAEMIA [None]
  - ANAEMIA [None]
  - FANCONI SYNDROME [None]
  - DEHYDRATION [None]
